FAERS Safety Report 7460524-X (Version None)
Quarter: 2011Q2

REPORT INFORMATION
  Report Type: 
  Country: None (occurrence: None)
  Receive Date: 20110419
  Receipt Date: 20110317
  Transmission Date: 20111010
  Serious: Yes (Other)
  Sender: FDA-Public Use
  Company Number: 2011027948

PATIENT
  Sex: Female

DRUGS (1)
  1. BERINERT [Suspect]
     Indication: HEREDITARY ANGIOEDEMA

REACTIONS (1)
  - THROMBOSIS [None]
